FAERS Safety Report 25214839 (Version 5)
Quarter: 2025Q2

REPORT INFORMATION
  Report Type: Spontaneous
  Country: US (occurrence: US)
  Receive Date: 20250418
  Receipt Date: 20250612
  Transmission Date: 20250716
  Serious: No
  Sender: PFIZER
  Company Number: US-PFIZER INC-PV202500044701

PATIENT
  Age: 52 Year
  Sex: Female
  Weight: 58.957 kg

DRUGS (7)
  1. ESTRING [Suspect]
     Active Substance: ESTRADIOL
     Indication: Arthralgia
     Dosage: INSERT 1 RING EVERY 90 DAYS
     Route: 067
     Dates: start: 20250322
  2. ESTRING [Suspect]
     Active Substance: ESTRADIOL
     Indication: Hot flush
  3. ESTRING [Suspect]
     Active Substance: ESTRADIOL
     Indication: Vertigo
  4. ESTRING [Suspect]
     Active Substance: ESTRADIOL
     Indication: Mood altered
  5. ESTRING [Suspect]
     Active Substance: ESTRADIOL
     Indication: Palpitations
  6. ESTRING [Suspect]
     Active Substance: ESTRADIOL
     Indication: Menopausal symptoms
  7. FEMRING [Concomitant]
     Active Substance: ESTRADIOL ACETATE
     Indication: Menopausal symptoms
     Dosage: 1 MG, 1X/DAY

REACTIONS (2)
  - Drug ineffective [Unknown]
  - Device defective [Unknown]
